FAERS Safety Report 25249138 (Version 1)
Quarter: 2025Q2

REPORT INFORMATION
  Report Type: Spontaneous
  Country: US (occurrence: US)
  Receive Date: 20250429
  Receipt Date: 20250429
  Transmission Date: 20250717
  Serious: No
  Sender: TEVA
  Company Number: US-TEVA-VS-3323990

PATIENT
  Age: 42 Year
  Sex: Female

DRUGS (10)
  1. COPAXONE [Suspect]
     Active Substance: GLATIRAMER ACETATE
     Indication: Product used for unknown indication
     Route: 065
  2. LORAZEPAM [Concomitant]
     Active Substance: LORAZEPAM
     Indication: Product used for unknown indication
  3. ONDANSETRON [Concomitant]
     Active Substance: ONDANSETRON
     Indication: Product used for unknown indication
  4. VITAMIN D3 [Concomitant]
     Active Substance: CHOLECALCIFEROL
     Indication: Product used for unknown indication
  5. ALBUTEROL SULFATE [Concomitant]
     Active Substance: ALBUTEROL SULFATE
     Indication: Product used for unknown indication
  6. B12 [Concomitant]
     Indication: Product used for unknown indication
  7. BACLOFEN [Concomitant]
     Active Substance: BACLOFEN
     Indication: Product used for unknown indication
  8. ESCITALOPRAM [Concomitant]
     Active Substance: ESCITALOPRAM OXALATE
     Indication: Product used for unknown indication
  9. FINGOLIMOD [Concomitant]
     Active Substance: FINGOLIMOD
     Indication: Product used for unknown indication
  10. IRON [Concomitant]
     Active Substance: IRON
     Indication: Product used for unknown indication

REACTIONS (1)
  - Treatment failure [Unknown]
